FAERS Safety Report 7058201-2 (Version None)
Quarter: 2010Q4

REPORT INFORMATION
  Report Type: 
  Country: None (occurrence: None)
  Receive Date: 20101022
  Receipt Date: 20101015
  Transmission Date: 20110411
  Serious: Yes (Life-Threatening, Hospitalization, Other)
  Sender: FDA-Public Use
  Company Number: PHHY2010BR69492

PATIENT
  Age: 32 Year
  Sex: Female

DRUGS (1)
  1. DESERILA [Suspect]
     Indication: HEADACHE
     Dosage: UNK

REACTIONS (4)
  - DEPRESSION [None]
  - DRUG DOSE OMISSION [None]
  - HEADACHE [None]
  - SUICIDE ATTEMPT [None]
